FAERS Safety Report 24097873 (Version 1)
Quarter: 2024Q3

REPORT INFORMATION
  Report Type: Spontaneous
  Country: DE (occurrence: DE)
  Receive Date: 20240716
  Receipt Date: 20240716
  Transmission Date: 20241016
  Serious: Yes (Death, Other)
  Sender: AMNEAL
  Company Number: DE-AMNEAL PHARMACEUTICALS-2024-AMRX-02562

PATIENT
  Age: 46 Year
  Sex: Male

DRUGS (3)
  1. TRAMADOL HYDROCHLORIDE [Suspect]
     Active Substance: TRAMADOL HYDROCHLORIDE
     Indication: Product used for unknown indication
     Dosage: UNK
     Route: 065
  2. NICOTINE [Suspect]
     Active Substance: NICOTINE
     Indication: Product used for unknown indication
     Dosage: 25 TRANSDERMAL NICOTINE PATCHES ATTACHED TO HIS THORAX AND ABDOMEN
     Route: 062
  3. DIPHENHYDRAMINE [Suspect]
     Active Substance: DIPHENHYDRAMINE
     Indication: Product used for unknown indication
     Dosage: UNK
     Route: 065

REACTIONS (3)
  - Cardiopulmonary failure [Fatal]
  - Toxicity to various agents [Fatal]
  - Completed suicide [Fatal]
